FAERS Safety Report 14169554 (Version 1)
Quarter: 2017Q4

REPORT INFORMATION
  Report Type: Spontaneous
  Country: US (occurrence: US)
  Receive Date: 20171107
  Receipt Date: 20171107
  Transmission Date: 20180321
  Serious: Yes (Life-Threatening, Hospitalization)
  Sender: FDA-Public Use
  Company Number: None

PATIENT
  Age: 32 Year
  Sex: Female
  Weight: 56 kg

DRUGS (5)
  1. DUONEB [Concomitant]
     Active Substance: ALBUTEROL SULFATE\IPRATROPIUM BROMIDE
  2. XIGDUO XR [Suspect]
     Active Substance: DAPAGLIFLOZIN PROPANEDIOL\METFORMIN HYDROCHLORIDE
     Indication: DIABETES MELLITUS
     Route: 048
     Dates: start: 20150601, end: 20171102
  3. ALBUTEROL. [Concomitant]
     Active Substance: ALBUTEROL
  4. PREDNISONE. [Concomitant]
     Active Substance: PREDNISONE
  5. DOXYCYCLINE. [Concomitant]
     Active Substance: DOXYCYCLINE

REACTIONS (6)
  - Blood glucose increased [None]
  - Mental status changes [None]
  - Vomiting [None]
  - Nausea [None]
  - Dyspnoea [None]
  - Diabetic ketoacidosis [None]

NARRATIVE: CASE EVENT DATE: 20171102
